APPROVED DRUG PRODUCT: MITOZYTREX
Active Ingredient: MITOMYCIN
Strength: 5MG/VIAL **Federal Register determination that product was not discontinued or withdrawn for safety or effectiveness reasons**
Dosage Form/Route: INJECTABLE;INJECTION
Application: N050763 | Product #001
Applicant: SUPERGEN INC
Approved: Nov 14, 2002 | RLD: Yes | RS: No | Type: DISCN